FAERS Safety Report 7268274-X (Version None)
Quarter: 2011Q1

REPORT INFORMATION
  Report Type: 
  Country: None (occurrence: None)
  Receive Date: 20110121
  Receipt Date: 20101202
  Transmission Date: 20110831
  Serious: Yes (Other)
  Sender: FDA-Public Use
  Company Number: 2011BI002332

PATIENT
  Age: 52 Year
  Sex: Female
  Weight: 55 kg

DRUGS (6)
  1. CYCLOPHOSPHAMIDE [Concomitant]
  2. RITUXIMAB [Concomitant]
  3. ZEVALIN [Suspect]
     Indication: B-CELL LYMPHOMA
     Dosage: 26.4 MCI;1X;IV
     Route: 042
     Dates: start: 20100813, end: 20100813
  4. PREDNISONE [Concomitant]
  5. FILGRASTIM [Concomitant]
  6. ADRIAMYCIN PFS [Concomitant]

REACTIONS (1)
  - BONE MARROW FAILURE [None]
